FAERS Safety Report 10053644 (Version 3)
Quarter: 2014Q2

REPORT INFORMATION
  Report Type: Spontaneous
  Country: US (occurrence: US)
  Receive Date: 20140402
  Receipt Date: 20140613
  Transmission Date: 20141212
  Serious: No
  Sender: FDA-Public Use
  Company Number: US-PFIZER INC-2014091858

PATIENT
  Age: 55 Year
  Sex: Female

DRUGS (3)
  1. CHANTIX [Suspect]
     Indication: TOBACCO ABUSE
     Dosage: 0.5/1 MG UNK
     Route: 048
     Dates: start: 20140220
  2. SIMVASTATIN [Concomitant]
     Dosage: 40 MG, 1X/DAY
  3. AMLODIPINE [Concomitant]
     Indication: HYPERTENSION
     Dosage: 10 MG, 1X/DAY

REACTIONS (1)
  - Impaired driving ability [Unknown]
